FAERS Safety Report 5223556-8 (Version None)
Quarter: 2007Q1

REPORT INFORMATION
  Report Type: 
  Country: None (occurrence: None)
  Receive Date: 20070125
  Receipt Date: 20070108
  Transmission Date: 20070707
  Serious: Yes (Other)
  Sender: FDA-Public Use
  Company Number: 200610427BBE

PATIENT
  Age: 46 Year
  Sex: Female
  Weight: 116.1208 kg

DRUGS (9)
  1. GAMUNEX [Suspect]
     Indication: INFERTILITY
     Dosage: 10 G, ONCE, INTRAVENOUS; 20 G, ONCE, INTRAVENOUS
     Route: 042
     Dates: start: 20061102
  2. GAMUNEX [Suspect]
  3. GAMUNEX [Suspect]
  4. ESTROGENS SOL/INJ [Concomitant]
  5. HUMIRA [Concomitant]
  6. DECADRON [Concomitant]
  7. THYROID TAB [Concomitant]
  8. METFORMIN HCL [Concomitant]
  9. ASPIRIN [Concomitant]

REACTIONS (2)
  - HEADACHE [None]
  - PAIN [None]
